FAERS Safety Report 8836609 (Version 1)
Quarter: 2012Q4

REPORT INFORMATION
  Report Type: Spontaneous
  Country: FR (occurrence: None)
  Receive Date: 20121010
  Receipt Date: 20121010
  Transmission Date: 20130627
  Serious: Yes (Hospitalization)
  Sender: FDA-Public Use
  Company Number: DSA_60044_2012

PATIENT
  Age: 69 Year
  Sex: Female

DRUGS (4)
  1. FLAGYL [Suspect]
     Indication: CHOLANGITIS
     Dosage: (not otherwise specified))
     Route: 042
     Dates: start: 20120629, end: 20120629
  2. CLAFORAN [Suspect]
     Indication: CHOLANGITIS
     Dosage: (not otherwise specified))
     Route: 042
     Dates: start: 20120629, end: 20120629
  3. INEXIUM [Suspect]
     Indication: CHOLANGITIS
     Dosage: (not otherwise specified))
     Route: 042
     Dates: start: 20120629, end: 20120629
  4. CONTRAMAL [Concomitant]

REACTIONS (1)
  - Anaphylactoid reaction [None]
